FAERS Safety Report 10074044 (Version 2)
Quarter: 2014Q2

REPORT INFORMATION
  Report Type: Spontaneous
  Country: US (occurrence: US)
  Receive Date: 20140413
  Receipt Date: 20140428
  Transmission Date: 20141212
  Serious: Yes (Hospitalization, Other)
  Sender: FDA-Public Use
  Company Number: US-MERCK-1404USA005070

PATIENT
  Age: 87 Year
  Sex: Male

DRUGS (1)
  1. PROSCAR [Suspect]
     Dosage: UNK
     Route: 048

REACTIONS (4)
  - Cerebrovascular accident [Unknown]
  - Vascular graft [Unknown]
  - Dementia with Lewy bodies [Unknown]
  - Wrong technique in drug usage process [Unknown]
